FAERS Safety Report 13434233 (Version 1)
Quarter: 2017Q2

REPORT INFORMATION
  Report Type: Spontaneous
  Country: AU (occurrence: AU)
  Receive Date: 20170412
  Receipt Date: 20170412
  Transmission Date: 20170830
  Serious: Yes (Other)
  Sender: FDA-Public Use
  Company Number: AU-NAPPMUNDI-GBR-2017-0043655

PATIENT
  Age: 18 Year
  Sex: Female
  Weight: 85 kg

DRUGS (2)
  1. TARGIN [Suspect]
     Active Substance: NALOXONE HYDROCHLORIDE\OXYCODONE HYDROCHLORIDE
     Indication: PRODUCT USED FOR UNKNOWN INDICATION
     Dosage: 5/2.5MG TWICE DAILY [STRENGTH 5/2.5 MG]
     Route: 048
     Dates: start: 20161130, end: 20161201
  2. HEPARIN [Concomitant]
     Active Substance: HEPARIN SODIUM

REACTIONS (3)
  - Skin burning sensation [Recovered/Resolved]
  - Drug prescribing error [Unknown]
  - Urticaria [Recovered/Resolved]

NARRATIVE: CASE EVENT DATE: 20161201
